FAERS Safety Report 9777138 (Version 2)
Quarter: 2014Q1

REPORT INFORMATION
  Report Type: Report from Study
  Country: AR (occurrence: AR)
  Receive Date: 20131221
  Receipt Date: 20140205
  Transmission Date: 20141002
  Serious: Yes (Other)
  Sender: FDA-Public Use
  Company Number: PHHO2013AR016212

PATIENT
  Sex: 0

DRUGS (6)
  1. ACZ885 [Suspect]
     Indication: CARDIOVASCULAR EVENT PROPHYLAXIS
     Dosage: 50 MG
     Route: 058
     Dates: start: 20120917, end: 20130917
  2. ENALAPRIL [Concomitant]
     Indication: HYPERTENSION
     Dosage: 5 MG, BID
     Route: 048
  3. ATENOLOL [Concomitant]
     Indication: MYOCARDIAL INFARCTION
     Dosage: 50 MG, QD
     Route: 048
     Dates: start: 20020715
  4. AAS [Concomitant]
     Indication: MYOCARDIAL INFARCTION
     Dosage: 100 MG, QD
     Route: 048
     Dates: start: 20020715
  5. METFORMIN [Concomitant]
     Indication: DIABETES MELLITUS
     Dosage: 850 MG, BID
     Route: 048
  6. OMEGA 3 [Concomitant]
     Indication: HYPERLIPIDAEMIA
     Dosage: 1000 MG, QD
     Route: 048

REACTIONS (1)
  - Adenocarcinoma of colon [Not Recovered/Not Resolved]
